FAERS Safety Report 21748860 (Version 1)
Quarter: 2022Q4

REPORT INFORMATION
  Report Type: Spontaneous
  Country: US (occurrence: None)
  Receive Date: 20221216
  Receipt Date: 20221216
  Transmission Date: 20230112
  Serious: Yes (Hospitalization)
  Sender: FDA-Public Use
  Company Number: None

PATIENT
  Sex: Male

DRUGS (1)
  1. CAPECITABINE [Suspect]
     Active Substance: CAPECITABINE
     Dosage: 1500 BID ORAL
     Route: 048

REACTIONS (5)
  - Diarrhoea [None]
  - Faeces discoloured [None]
  - Chromaturia [None]
  - Cardiac disorder [None]
  - Atrial fibrillation [None]
